FAERS Safety Report 5574993-3 (Version None)
Quarter: 2007Q4

REPORT INFORMATION
  Report Type: 
  Country: None (occurrence: None)
  Receive Date: 20071227
  Receipt Date: 20071220
  Transmission Date: 20080405
  Serious: Yes (Hospitalization)
  Sender: FDA-Public Use
  Company Number: B0500914A

PATIENT
  Age: 3 Year
  Sex: Female

DRUGS (1)
  1. ZOVIRAX [Suspect]
     Route: 042
     Dates: start: 20071125, end: 20071126

REACTIONS (3)
  - AGITATION [None]
  - HYPERTONIA [None]
  - RESTLESSNESS [None]
